FAERS Safety Report 9196948 (Version 1)
Quarter: 2013Q1

REPORT INFORMATION
  Report Type: Spontaneous
  Country: US (occurrence: None)
  Receive Date: 20120709
  Receipt Date: 20120709
  Transmission Date: 20140127
  Serious: No
  Sender: FDA-Public Use
  Company Number: 2012HGS-003671

PATIENT
  Age: 53 Year
  Sex: Female
  Weight: 99.79 kg

DRUGS (14)
  1. BENLYSTA [Suspect]
     Indication: SYSTEMIC LUPUS ERYTHEMATOSUS
     Dosage: 1 IN 28 D, INTRAVENOUS DRIP
     Dates: start: 20110602
  2. METHOTREXATE (METHOTREXATE SODIUM) (METHOTREXATE SODIUM) [Concomitant]
  3. PREDNISONE (PREDNISONE) (PREDNISONE) [Concomitant]
  4. PRILOSEC (OMEPRAZOLE) (OMEPRAZOLE) [Concomitant]
  5. CARAFATE (SUCRALFATE) (SUCRALFATE) [Concomitant]
  6. ZYRTEC (CETIRIZINE HYDROCHLORIDE) (CETIRIZINE HYDROCHLORIDE) [Concomitant]
  7. PAXIL (PAROXETINE HYDROCHLORIDE) (PAROXETINE HYDROCHLORIDE) [Concomitant]
  8. PLAQUENIL (HYDROXYCHLOROQUINE SULFATE) (HYDROXYCHLOROQUINE SULFATE) [Concomitant]
  9. VITAMIN D (ERGOCALCIFEROL) (ERGOCALCIFEROL) [Concomitant]
  10. FOLIC ACID (FOLIC ACID) (FOLIC ACID) [Concomitant]
  11. NEURONTIN (GABAPENTIN) (GABAPENTIN) [Concomitant]
  12. CALCIUM (CALCIUM) (CALCIUM) [Concomitant]
  13. BACTROBAN (MUPIROCIN) (MUPIROCIN) [Concomitant]
  14. AUGMENTIN (AUGMENTIN /00756801/) (AMOXICILLIN SODIUM, CLAVULANATE POTASSIUM) [Concomitant]

REACTIONS (1)
  - Sinusitis [None]
